FAERS Safety Report 18349982 (Version 1)
Quarter: 2020Q4

REPORT INFORMATION
  Report Type: Spontaneous
  Country: US (occurrence: US)
  Receive Date: 20201006
  Receipt Date: 20201006
  Transmission Date: 20210114
  Serious: Yes (Other)
  Sender: FDA-Public Use
  Company Number: US-LUPIN HEALTHCARE (UK) LIMITED-2020-06640

PATIENT
  Sex: Female

DRUGS (1)
  1. CEPHALEXIN CAPSULES USP, 500 MG [Suspect]
     Active Substance: CEPHALEXIN
     Indication: URINARY TRACT INFECTION
     Dosage: 500 MILLIGRAM, TID
     Route: 065
     Dates: start: 20200827, end: 20200903

REACTIONS (7)
  - Peripheral swelling [Not Recovered/Not Resolved]
  - Illness [Not Recovered/Not Resolved]
  - Pain in extremity [Unknown]
  - Feeding disorder [Unknown]
  - Nausea [Not Recovered/Not Resolved]
  - Rash macular [Unknown]
  - Rash pruritic [Not Recovered/Not Resolved]
